FAERS Safety Report 8985169 (Version 1)
Quarter: 2012Q4

REPORT INFORMATION
  Report Type: 
  Country: JP (occurrence: JP)
  Receive Date: 20121226
  Receipt Date: 20121226
  Transmission Date: 20130627
  Serious: Yes (Other)
  Sender: FDA-Public Use
  Company Number: JP-009507513-1212JPN000207

PATIENT
  Age: 50 Year
  Sex: Female

DRUGS (12)
  1. FOSAPREPITANT DIMEGLUMINE [Suspect]
     Indication: PROPHYLAXIS OF NAUSEA AND VOMITING
     Dosage: 150 mg, qd
     Route: 041
     Dates: start: 2012, end: 2012
  2. FOSAPREPITANT DIMEGLUMINE [Suspect]
     Dosage: 150 mg, qd
     Route: 041
     Dates: start: 2012, end: 2012
  3. FOSAPREPITANT DIMEGLUMINE [Suspect]
     Dosage: 150 mg, Once
     Route: 041
     Dates: start: 20120904, end: 20120904
  4. EPIRUBICIN HYDROCHLORIDE [Suspect]
     Indication: BREAST CANCER
     Dosage: UNK
     Route: 041
     Dates: start: 2012, end: 2012
  5. EPIRUBICIN HYDROCHLORIDE [Suspect]
     Dosage: UNK
     Route: 041
     Dates: start: 2012, end: 2012
  6. EPIRUBICIN HYDROCHLORIDE [Suspect]
     Dosage: UNK
     Route: 041
     Dates: start: 20120904
  7. FLUOROURACIL [Concomitant]
     Indication: BREAST CANCER
     Dosage: UNK
     Dates: start: 2012, end: 2012
  8. FLUOROURACIL [Concomitant]
     Dosage: UNK
     Dates: start: 2012, end: 2012
  9. FLUOROURACIL [Concomitant]
     Dosage: UNK
     Dates: start: 20120904
  10. CYCLOPHOSPHAMIDE [Concomitant]
     Indication: BREAST CANCER
     Dosage: UNK
     Dates: start: 2012, end: 2012
  11. CYCLOPHOSPHAMIDE [Concomitant]
     Dosage: UNK
     Dates: start: 2012, end: 2012
  12. CYCLOPHOSPHAMIDE [Concomitant]
     Dosage: UNK
     Dates: start: 20120904

REACTIONS (2)
  - Injection site phlebitis [Not Recovered/Not Resolved]
  - Injection site pain [Recovered/Resolved]
